FAERS Safety Report 17727941 (Version 1)
Quarter: 2020Q2

REPORT INFORMATION
  Report Type: Spontaneous
  Country: FR (occurrence: FR)
  Receive Date: 20200430
  Receipt Date: 20200430
  Transmission Date: 20200714
  Serious: Yes (Hospitalization)
  Sender: FDA-Public Use
  Company Number: FR-009507513-2004FRA008268

PATIENT
  Age: 61 Year
  Sex: Female

DRUGS (1)
  1. PEMBROLIZUMAB. [Suspect]
     Active Substance: PEMBROLIZUMAB
     Indication: MALIGNANT MELANOMA
     Dosage: 1 DOSAGE FORM, Q3W
     Route: 042
     Dates: start: 20151006, end: 201705

REACTIONS (2)
  - Eosinophilia [Recovered/Resolved]
  - Eosinophilic fasciitis [Recovered/Resolved]

NARRATIVE: CASE EVENT DATE: 201610
